FAERS Safety Report 9470682 (Version 1)
Quarter: 2013Q3

REPORT INFORMATION
  Report Type: Spontaneous
  Country: US (occurrence: None)
  Receive Date: 20130820
  Receipt Date: 20130820
  Transmission Date: 20140515
  Serious: Yes (Disabling, Other)
  Sender: FDA-Public Use
  Company Number: None

PATIENT
  Sex: Male

DRUGS (6)
  1. HALDO DECANOATE [Suspect]
     Indication: MOOD SWINGS
     Dosage: 200/80 MG 1 SHOT ONCE A MONTH BY INJECTION.
     Route: 048
     Dates: start: 20080315, end: 20060715
  2. COLACE [Concomitant]
  3. ZANTAC [Concomitant]
  4. PRILOSEC [Concomitant]
  5. VENTOLIN [Concomitant]
  6. QVAR INHALER [Concomitant]

REACTIONS (1)
  - Dyspnoea [None]
